FAERS Safety Report 4450246-1 (Version None)
Quarter: 2004Q3

REPORT INFORMATION
  Report Type: 
  Country: None (occurrence: None)
  Receive Date: 20040914
  Receipt Date: 20040902
  Transmission Date: 20050211
  Serious: Yes (Other)
  Sender: FDA-Public Use
  Company Number: 2004231585JP

PATIENT
  Age: 64 Year
  Sex: Male

DRUGS (3)
  1. EPIRUBICIN [Suspect]
     Indication: GASTRIC CANCER
     Dosage: 40 MG, WEEKLY, INTRA-ARTERIAL
     Route: 013
     Dates: start: 20030812, end: 20040310
  2. FLUOROURACIL [Suspect]
     Indication: GASTRIC CANCER
     Dosage: 500 MG, WEEKLY, INTRA-ARTERIAL
     Route: 013
     Dates: start: 20030812, end: 20040310
  3. MITOMYCIN [Suspect]
     Indication: GASTRIC CANCER
     Dosage: 4 MG, WEEKLY, INTRA-ARTERIAL
     Route: 013
     Dates: start: 20030812, end: 20040310

REACTIONS (2)
  - AORTIC DISSECTION [None]
  - POST PROCEDURAL COMPLICATION [None]
